FAERS Safety Report 23084072 (Version 2)
Quarter: 2023Q4

REPORT INFORMATION
  Report Type: Spontaneous
  Country: GB (occurrence: GB)
  Receive Date: 20231019
  Receipt Date: 20231023
  Transmission Date: 20240110
  Serious: No
  Sender: FDA-Public Use
  Company Number: GB-PFIZER INC-PV202300171098

PATIENT

DRUGS (2)
  1. PAXLOVID [Interacting]
     Active Substance: NIRMATRELVIR\RITONAVIR
     Dosage: UNK
  2. RIVAROXABAN [Interacting]
     Active Substance: RIVAROXABAN
     Dosage: UNK

REACTIONS (1)
  - Labelled drug-drug interaction medication error [Unknown]
